FAERS Safety Report 4318113-1 (Version None)
Quarter: 2004Q1

REPORT INFORMATION
  Report Type: 
  Country: None (occurrence: None)
  Receive Date: 20040317
  Receipt Date: 20040311
  Transmission Date: 20041129
  Serious: Yes (Hospitalization)
  Sender: FDA-Public Use
  Company Number: FR-BRISTOL-MYERS SQUIBB COMPANY-12531497

PATIENT
  Age: 75 Year
  Sex: Female

DRUGS (6)
  1. SINEMET [Suspect]
     Indication: PARKINSON'S DISEASE
     Route: 048
  2. PARLODEL [Suspect]
     Indication: PARKINSON'S DISEASE
     Route: 048
  3. XANAX [Concomitant]
  4. LEVOTHYROXINE SODIUM [Concomitant]
  5. LAROXYL [Concomitant]
  6. APOKINON [Concomitant]

REACTIONS (2)
  - DELIRIUM [None]
  - HALLUCINATION [None]
